FAERS Safety Report 20175257 (Version 1)
Quarter: 2021Q4

REPORT INFORMATION
  Report Type: Spontaneous
  Country: US (occurrence: US)
  Receive Date: 20211213
  Receipt Date: 20211213
  Transmission Date: 20220303
  Serious: No
  Sender: FDA-Public Use
  Company Number: US-BIOGEN-2021BI01058532

PATIENT
  Sex: Male

DRUGS (6)
  1. VUMERITY [Suspect]
     Active Substance: DIROXIMEL FUMARATE
     Indication: Multiple sclerosis
     Dosage: TAKE 2 CAPSULES (462MG) BY MOUTH TWICE DAILY
     Route: 048
  2. VUMERITY [Suspect]
     Active Substance: DIROXIMEL FUMARATE
     Route: 065
     Dates: start: 20210513
  3. ELIQUIS [Concomitant]
     Active Substance: APIXABAN
     Route: 065
  4. DILTIAZEM HYDROCHLORIDE [Concomitant]
     Active Substance: DILTIAZEM HYDROCHLORIDE
     Route: 065
  5. QUERCETIN [Concomitant]
     Active Substance: QUERCETIN
     Route: 065
  6. ZINC [Concomitant]
     Active Substance: ZINC
     Route: 065

REACTIONS (3)
  - Product dose omission in error [Unknown]
  - Hypoacusis [Unknown]
  - Flushing [Recovered/Resolved]
